FAERS Safety Report 22162685 (Version 1)
Quarter: 2023Q1

REPORT INFORMATION
  Report Type: Spontaneous
  Country: ID (occurrence: None)
  Receive Date: 20230331
  Receipt Date: 20230331
  Transmission Date: 20230418
  Serious: Yes (Death, Other)
  Sender: FDA-Public Use
  Company Number: 2023A074792

PATIENT
  Age: 49 Year
  Sex: Female

DRUGS (1)
  1. FASLODEX [Suspect]
     Active Substance: FULVESTRANT
     Indication: Breast cancer female
     Route: 030
     Dates: start: 202204, end: 202210

REACTIONS (3)
  - Pancytopenia [Fatal]
  - Myelosuppression [Unknown]
  - Metastases to bone [Unknown]
